FAERS Safety Report 9233175 (Version 1)
Quarter: 2013Q1

REPORT INFORMATION
  Report Type: Spontaneous
  Country: US (occurrence: None)
  Receive Date: 20121031
  Receipt Date: 20121031
  Transmission Date: 20140127
  Serious: No
  Sender: FDA-Public Use
  Company Number: PHEH2012US014293

PATIENT
  Age: 23 Year
  Sex: Female
  Weight: 60.78 kg

DRUGS (2)
  1. GILENYA (FTY) CAPSULE, 0.5MG [Suspect]
     Indication: MULTIPLE SCLEROSIS
     Route: 048
     Dates: start: 20120719
  2. ORAL CONTRACEPTIVE NOS [Concomitant]

REACTIONS (2)
  - Nervousness [None]
  - Fear [None]
